FAERS Safety Report 25187295 (Version 1)
Quarter: 2025Q2

REPORT INFORMATION
  Report Type: Spontaneous
  Country: AT (occurrence: AT)
  Receive Date: 20250411
  Receipt Date: 20250411
  Transmission Date: 20250716
  Serious: Yes (Death, Hospitalization)
  Sender: AMGEN
  Company Number: AT-AMGEN-AUTSP2025068683

PATIENT
  Age: 68 Year
  Sex: Male

DRUGS (2)
  1. LUMAKRAS [Suspect]
     Active Substance: SOTORASIB
     Indication: Non-small cell lung cancer
     Dosage: 960 MILLIGRAM, QD
     Route: 065
     Dates: start: 202410, end: 202501
  2. LUMAKRAS [Suspect]
     Active Substance: SOTORASIB
     Indication: K-ras gene mutation

REACTIONS (3)
  - Death [Fatal]
  - General physical health deterioration [Unknown]
  - Lung opacity [Unknown]

NARRATIVE: CASE EVENT DATE: 20250115
